FAERS Safety Report 4444057-0 (Version None)
Quarter: 2004Q3

REPORT INFORMATION
  Report Type: 
  Country: None (occurrence: None)
  Receive Date: 20040729
  Receipt Date: 20040112
  Transmission Date: 20050211
  Serious: Yes (Other)
  Sender: FDA-Public Use
  Company Number: US-JNJFOC-20040102224

PATIENT
  Age: 57 Year
  Sex: Male

DRUGS (4)
  1. RISPERDAL [Suspect]
     Indication: DEPRESSION
     Dosage: 2 MG, 1 IN 1 DAY, ORAL
     Route: 048
     Dates: start: 20030101, end: 20030301
  2. VITAMIN E (TOCOPHEROL) CAPSULES [Concomitant]
  3. VERAPAMIL [Concomitant]
  4. POTABA (POTASSIUM AMINOBENZOATE) TABLETS [Concomitant]

REACTIONS (1)
  - PRIAPISM [None]
